FAERS Safety Report 16978037 (Version 3)
Quarter: 2019Q4

REPORT INFORMATION
  Report Type: Report from Study
  Country: US (occurrence: US)
  Receive Date: 20191031
  Receipt Date: 20191230
  Transmission Date: 20200122
  Serious: Yes (Other)
  Sender: FDA-Public Use
  Company Number: US-AEGERION PHARMACEUTICAL, INC-AEGR004501

PATIENT
  Age: 49 Year
  Sex: Female

DRUGS (15)
  1. MYALEPT [Suspect]
     Active Substance: METRELEPTIN
     Indication: CONGENITAL GENERALISED LIPODYSTROPHY
     Dosage: 5 MG (100 UNITS), BID
     Route: 058
     Dates: start: 200012
  2. MYALEPT [Suspect]
     Active Substance: METRELEPTIN
     Dosage: 5 MG, BID
     Route: 058
     Dates: start: 201812
  3. MYALEPT [Suspect]
     Active Substance: METRELEPTIN
     Dosage: 5 MG, BID
     Route: 058
     Dates: start: 20190220, end: 20190319
  4. LEVOTHYROXINE. [Concomitant]
     Active Substance: LEVOTHYROXINE
     Indication: HYPOTHYROIDISM
     Dosage: 125 MCG, QD
     Route: 048
     Dates: start: 1991
  5. BIOTIN [Concomitant]
     Active Substance: BIOTIN
     Indication: SUPPLEMENTATION THERAPY
     Dosage: 100000 MCG, QD
     Route: 048
     Dates: start: 2018
  6. VITAMIN B COMPLEX [Concomitant]
     Active Substance: CYANOCOBALAMIN\DEXPANTHENOL\NIACINAMIDE\PYRIDOXINE HYDROCHLORIDE\RIBOFLAVIN 5^-PHOSPHATE SODIUM\THIAMINE HYDROCHLORIDE\VITAMIN B COMPLEX
     Indication: SUPPLEMENTATION THERAPY
     Dosage: 5000 MCG, QD
     Route: 048
     Dates: start: 2019
  7. MYALEPT [Suspect]
     Active Substance: METRELEPTIN
     Dosage: 5 MG (100 UNITS), BID
     Route: 058
     Dates: start: 200101
  8. OMEGA 3                            /01334101/ [Concomitant]
     Active Substance: OMEGA-3 FATTY ACIDS
     Indication: HYPERTRIGLYCERIDAEMIA
     Dosage: 1000 MG, QD
     Route: 048
     Dates: start: 2019
  9. LISINOPRIL. [Concomitant]
     Active Substance: LISINOPRIL
     Indication: RENAL DISORDER PROPHYLAXIS
     Dosage: 5 MG, QD
     Route: 048
     Dates: start: 2018
  10. VITAMIN B12 [Concomitant]
     Active Substance: CYANOCOBALAMIN
     Indication: PRODUCT USED FOR UNKNOWN INDICATION
     Dosage: 5000 MCG, QD
     Route: 048
  11. INSULIN 70/30 [Concomitant]
     Active Substance: INSULIN HUMAN
     Indication: PRODUCT USED FOR UNKNOWN INDICATION
     Dosage: 50-60 UNITS, QD (DAILY IN AM)
     Route: 058
     Dates: start: 2001
  12. VITAMIN D WITH OMEGA 3 [Concomitant]
     Indication: PRODUCT USED FOR UNKNOWN INDICATION
     Dosage: 2 DF, QD
     Route: 048
  13. MYALEPT [Suspect]
     Active Substance: METRELEPTIN
     Dosage: 5 MG, BID
     Route: 058
     Dates: start: 20190320
  14. GLIPIZIDE. [Concomitant]
     Active Substance: GLIPIZIDE
     Indication: DIABETES MELLITUS
     Dosage: 5 MG, QD
     Route: 048
  15. HCTZ [Concomitant]
     Active Substance: HYDROCHLOROTHIAZIDE
     Indication: HYPERTENSION
     Dosage: 50 MG, QD
     Route: 048

REACTIONS (13)
  - Weight increased [Not Recovered/Not Resolved]
  - Drug ineffective [Not Recovered/Not Resolved]
  - Diabetes mellitus [Unknown]
  - Glycosylated haemoglobin increased [Unknown]
  - Insulin resistance [Unknown]
  - Hyperphagia [Unknown]
  - Hepatic steatosis [Unknown]
  - Product dose omission [Recovered/Resolved]
  - Hunger [Not Recovered/Not Resolved]
  - Non-alcoholic steatohepatitis [Unknown]
  - Blood glucose increased [Not Recovered/Not Resolved]
  - Diabetes mellitus inadequate control [Not Recovered/Not Resolved]
  - Hepatomegaly [Recovering/Resolving]

NARRATIVE: CASE EVENT DATE: 201812
